FAERS Safety Report 6899743-X (Version None)
Quarter: 2010Q3

REPORT INFORMATION
  Report Type: 
  Country: None (occurrence: None)
  Receive Date: 20100803
  Receipt Date: 20100723
  Transmission Date: 20110219
  Serious: Yes (Hospitalization)
  Sender: FDA-Public Use
  Company Number: US-WYE-H16417110

PATIENT
  Sex: Female
  Weight: 61.29 kg

DRUGS (5)
  1. PREMPRO [Suspect]
     Indication: HOT FLUSH
     Dosage: STARTED ON THE LOWEST DOSE
     Route: 065
     Dates: end: 20100201
  2. PREMPRO [Suspect]
     Dosage: UNKNOWN
     Route: 065
  3. ACETYLSALICYLIC ACID SRT [Concomitant]
     Indication: PRODUCT USED FOR UNKNOWN INDICATION
     Dosage: UNKNOWN
     Route: 065
  4. VITAMINS [Concomitant]
     Indication: PRODUCT USED FOR UNKNOWN INDICATION
     Dosage: UNKNOWN
     Route: 065
  5. LEVOTHYROXINE SODIUM [Concomitant]
     Indication: THYROIDECTOMY
     Dosage: UNKNOWN
     Route: 065

REACTIONS (5)
  - CORONARY ARTERY OCCLUSION [None]
  - DRUG INEFFECTIVE [None]
  - DRUG WITHDRAWAL SYNDROME [None]
  - MALAISE [None]
  - PAIN [None]
